FAERS Safety Report 9057016 (Version 1)
Quarter: 2013Q1

REPORT INFORMATION
  Report Type: Report from Study
  Country: US (occurrence: US)
  Receive Date: 20130131
  Receipt Date: 20130131
  Transmission Date: 20140127
  Serious: No
  Sender: FDA-Public Use
  Company Number: US-ABBOTT-12P-163-0992521-00

PATIENT
  Age: 31 None
  Sex: Female
  Weight: 149.82 kg

DRUGS (4)
  1. HUMIRA [Suspect]
     Indication: PUSTULAR PSORIASIS
     Dates: start: 20121002
  2. METHOTREXATE [Concomitant]
     Indication: PUSTULAR PSORIASIS
  3. ALBUTEROL HFA [Concomitant]
     Indication: ASTHMA
  4. SYMBICORT [Concomitant]
     Indication: ASTHMA

REACTIONS (1)
  - Off label use [Not Recovered/Not Resolved]
